FAERS Safety Report 10362174 (Version 1)
Quarter: 2014Q1

REPORT INFORMATION
  Report Type: Spontaneous
  Country: US (occurrence: None)
  Receive Date: 20140306
  Receipt Date: 20140306
  Transmission Date: 20141002
  Serious: Yes (Other)
  Sender: FDA-Public Use
  Company Number: 163-21880-13044133

PATIENT
  Age: 82 Year
  Sex: Male
  Weight: 65.2 kg

DRUGS (14)
  1. REVLIMID (LENALIDOMIDE) (15 MILLIGRAM, CAPSULES) [Suspect]
     Indication: PLASMA CELL MYELOMA
     Route: 048
     Dates: start: 20130321, end: 201304
  2. ZOMETA (ZOLEDRONIC ACID) (INJECTION) [Concomitant]
  3. ZOLOFT (SERTRALINE HYDROCHLORIDE) (TABLETS) [Concomitant]
  4. SYNTHROID (LEVOTHYROXINE SODIUM) (TABLETS) [Concomitant]
  5. BUMETANIDE (TABLETS) [Concomitant]
  6. LORAZEPAM (TABLETS) [Concomitant]
  7. ONDANSETRON HCL (ONDANSETRON HYDROCHLORIDE) (TABLETS) [Concomitant]
  8. ECOTRIN EC (ACETYLSALICYLIC ACID) (ENTERIC-COATED TABLET) [Concomitant]
  9. AMITRIPTYLINE HCL (AMITRIPTYLINE HYDROCHLORIDE) (TABLETS) [Concomitant]
  10. OMEPRAZOLE DR (CAPSULES) [Concomitant]
  11. HYDROCODONE ACETAMINOPHEN (VICODIN) (UNKNOWN) [Concomitant]
  12. MECLIZINE (TABLETS) [Concomitant]
  13. PHENERGAN AMPUL (PROMETHAZINE) (UNKNOWN) [Concomitant]
  14. VELCADE (BORTEZOMIB) [Concomitant]

REACTIONS (7)
  - White blood cell count decreased [None]
  - Dizziness postural [None]
  - Fall [None]
  - Fatigue [None]
  - Rash [None]
  - Platelet count decreased [None]
  - Full blood count decreased [None]
